FAERS Safety Report 14485426 (Version 1)
Quarter: 2018Q1

REPORT INFORMATION
  Report Type: Spontaneous
  Country: US (occurrence: US)
  Receive Date: 20180202
  Receipt Date: 20180202
  Transmission Date: 20180509
  Serious: Yes (Hospitalization)
  Sender: FDA-Public Use
  Company Number: None

PATIENT
  Age: 64 Year
  Sex: Female

DRUGS (36)
  1. VIRT-VITE [Concomitant]
     Active Substance: CYANOCOBALAMIN\FOLIC ACID\PYRIDOXINE HYDROCHLORIDE
  2. TOPIRAMATE. [Concomitant]
     Active Substance: TOPIRAMATE
  3. METFORMIN [Concomitant]
     Active Substance: METFORMIN HYDROCHLORIDE
  4. SPIRIVA [Concomitant]
     Active Substance: TIOTROPIUM BROMIDE MONOHYDRATE
  5. NORTRIPTYLIN [Concomitant]
     Active Substance: NORTRIPTYLINE
  6. LOSARTAN POT [Concomitant]
     Active Substance: LOSARTAN POTASSIUM
  7. NITROGLYCER [Concomitant]
  8. MONTEULKAST [Concomitant]
  9. HYDRALAZINE [Concomitant]
     Active Substance: HYDRALAZINE HYDROCHLORIDE
  10. PROAIR HFA [Concomitant]
     Active Substance: ALBUTEROL SULFATE
  11. BENLYSTA [Suspect]
     Active Substance: BELIMUMAB
     Indication: OSTEOPOROSIS
     Route: 058
     Dates: start: 20171129
  12. HYDROCO/APAP [Concomitant]
     Active Substance: ACETAMINOPHEN\HYDROCODONE
  13. GABAPENTIN. [Concomitant]
     Active Substance: GABAPENTIN
  14. PREDNISONE. [Concomitant]
     Active Substance: PREDNISONE
  15. AZATHIOPRINE. [Concomitant]
     Active Substance: AZATHIOPRINE
  16. ATORVASTATIN [Concomitant]
     Active Substance: ATORVASTATIN
  17. LIDOCAINE. [Concomitant]
     Active Substance: LIDOCAINE
  18. SYMBICORT [Concomitant]
     Active Substance: BUDESONIDE\FORMOTEROL FUMARATE DIHYDRATE
  19. CLOBETASOL [Concomitant]
     Active Substance: CLOBETASOL
  20. COMBIGAN [Concomitant]
     Active Substance: BRIMONIDINE TARTRATE\TIMOLOL MALEATE
  21. LUMIGAN [Concomitant]
     Active Substance: BIMATOPROST
  22. FLUTICASONE. [Concomitant]
     Active Substance: FLUTICASONE
  23. MIRAPEX ER [Concomitant]
     Active Substance: PRAMIPEXOLE DIHYDROCHLORIDE
  24. LORAZEPAM. [Concomitant]
     Active Substance: LORAZEPAM
  25. METOPROL TAR [Concomitant]
  26. CIPROFLOXACN [Concomitant]
     Active Substance: CIPROFLOXACIN
  27. LEVOFLOXACIN. [Concomitant]
     Active Substance: LEVOFLOXACIN
  28. DULOXETINE. [Concomitant]
     Active Substance: DULOXETINE
  29. POT CHLORIDE [Concomitant]
     Active Substance: POTASSIUM CHLORIDE
  30. OMEPRAZOLE. [Concomitant]
     Active Substance: OMEPRAZOLE
  31. FUROSEMIDE. [Concomitant]
     Active Substance: FUROSEMIDE
  32. CONTOUR TES [Concomitant]
  33. TIZANIDINE. [Concomitant]
     Active Substance: TIZANIDINE
  34. ZOLPIDEM [Concomitant]
     Active Substance: ZOLPIDEM\ZOLPIDEM TARTRATE
  35. LEVOTHYROXIN [Concomitant]
     Active Substance: LEVOTHYROXINE
  36. PROVENTIL [Concomitant]
     Active Substance: ALBUTEROL

REACTIONS (1)
  - Pneumonia [None]
